FAERS Safety Report 23030812 (Version 1)
Quarter: 2023Q4

REPORT INFORMATION
  Report Type: Spontaneous
  Country: US (occurrence: US)
  Receive Date: 20231005
  Receipt Date: 20231005
  Transmission Date: 20240110
  Serious: No
  Sender: FDA-Public Use
  Company Number: US-CIPLA LTD.-2023US04803

PATIENT

DRUGS (2)
  1. LANREOTIDE ACETATE [Suspect]
     Active Substance: LANREOTIDE ACETATE
     Indication: Metastatic carcinoid tumour
     Dosage: UNK
     Route: 065
     Dates: start: 20230515
  2. LANREOTIDE ACETATE [Suspect]
     Active Substance: LANREOTIDE ACETATE
     Dosage: UNK (120/0.5) MILLIGRAM PER MILLILITRE
     Route: 065
     Dates: start: 2023

REACTIONS (6)
  - Product dose omission issue [Unknown]
  - Syringe issue [Unknown]
  - Product use complaint [Unknown]
  - Device defective [Unknown]
  - Device deployment issue [Unknown]
  - Device delivery system issue [Unknown]

NARRATIVE: CASE EVENT DATE: 20230101
